FAERS Safety Report 15164476 (Version 3)
Quarter: 2018Q3

REPORT INFORMATION
  Report Type: Spontaneous
  Country: US (occurrence: US)
  Receive Date: 20180719
  Receipt Date: 20180910
  Transmission Date: 20181010
  Serious: Yes (Other)
  Sender: FDA-Public Use
  Company Number: US-PFIZER INC-2018215504

PATIENT
  Age: 65 Year
  Sex: Female
  Weight: 51.7 kg

DRUGS (6)
  1. LEXAPRO [Concomitant]
     Active Substance: ESCITALOPRAM OXALATE
     Dosage: 10 MG, 1X/DAY
  2. LEXAPRO [Concomitant]
     Active Substance: ESCITALOPRAM OXALATE
     Indication: HOT FLUSH
     Dosage: UNK
     Dates: start: 201612
  3. VFEND [Suspect]
     Active Substance: VORICONAZOLE
     Indication: CONDITION AGGRAVATED
     Dosage: 200 MG, 2X/DAY
     Dates: start: 201612
  4. PRILOSEC [Concomitant]
     Active Substance: OMEPRAZOLE MAGNESIUM
     Indication: ULCER
     Dosage: 20 MG, 1X/DAY
     Route: 048
  5. VFEND [Suspect]
     Active Substance: VORICONAZOLE
     Indication: ASPERGILLUS INFECTION
     Dosage: 200 MG, TWO TIMES A DAY
     Route: 048
     Dates: start: 201806, end: 20180710
  6. VFEND [Suspect]
     Active Substance: VORICONAZOLE
     Dosage: 200 MG, 2X/DAY

REACTIONS (36)
  - Mouth ulceration [Unknown]
  - Trichorrhexis [Not Recovered/Not Resolved]
  - Hypertrichosis [Not Recovered/Not Resolved]
  - Diarrhoea [Unknown]
  - Vision blurred [Unknown]
  - Thirst [Unknown]
  - Skin disorder [Unknown]
  - Skin discolouration [Not Recovered/Not Resolved]
  - Pruritus [Not Recovered/Not Resolved]
  - Back pain [Unknown]
  - Rash [Unknown]
  - Visual impairment [Unknown]
  - Dry mouth [Unknown]
  - Hyperhidrosis [Unknown]
  - Abdominal distension [Unknown]
  - Skin exfoliation [Unknown]
  - Hallucination, visual [Unknown]
  - Blister [Not Recovered/Not Resolved]
  - Feeling hot [Unknown]
  - Drug effect incomplete [Not Recovered/Not Resolved]
  - Confusional state [Unknown]
  - Pyrexia [Unknown]
  - Decreased appetite [Unknown]
  - Dry skin [Not Recovered/Not Resolved]
  - Nail growth abnormal [Unknown]
  - Chest pain [Unknown]
  - Abdominal pain [Unknown]
  - Dyschromatopsia [Unknown]
  - Muscle spasms [Unknown]
  - Photophobia [Unknown]
  - Erythema [Recovering/Resolving]
  - Insomnia [Not Recovered/Not Resolved]
  - Cheilitis [Not Recovered/Not Resolved]
  - Stomatitis [Not Recovered/Not Resolved]
  - Photosensitivity reaction [Unknown]
  - Hair injury [Unknown]

NARRATIVE: CASE EVENT DATE: 201612
